FAERS Safety Report 6375689-0 (Version None)
Quarter: 2009Q3

REPORT INFORMATION
  Report Type: 
  Country: None (occurrence: None)
  Receive Date: 20090922
  Receipt Date: 20090922
  Transmission Date: 20100115
  Serious: Yes (Other)
  Sender: FDA-Public Use
  Company Number: None

PATIENT
  Age: 49 Year
  Sex: Female
  Weight: 104.3273 kg

DRUGS (1)
  1. TOPIRAMATE [Suspect]
     Indication: NEURALGIA
     Dosage: 1 BEDTIME PO
     Route: 048
     Dates: start: 20090917, end: 20090918

REACTIONS (4)
  - EYE PAIN [None]
  - LIP SWELLING [None]
  - PHOTOPHOBIA [None]
  - VISION BLURRED [None]
